FAERS Safety Report 8985468 (Version 1)
Quarter: 2012Q4

REPORT INFORMATION
  Report Type: 
  Country: FR (occurrence: FR)
  Receive Date: 20121226
  Receipt Date: 20121226
  Transmission Date: 20130627
  Serious: Yes (Hospitalization)
  Sender: FDA-Public Use
  Company Number: FR-MERCK-2011SP041383

PATIENT
  Age: 50 Year
  Sex: Female

DRUGS (9)
  1. AERIUS [Suspect]
     Indication: PREMEDICATION
     Dosage: 5 mg, ONCE
     Route: 048
     Dates: start: 20110621, end: 20110621
  2. EMEND [Suspect]
     Dosage: 125 mg, ONCE
     Route: 048
     Dates: start: 20110621, end: 20110621
  3. PACLITAXEL [Suspect]
     Indication: RECTAL CANCER
     Dosage: 306.25 mg, ONCE
     Route: 042
     Dates: start: 20110621, end: 20110621
  4. CARBOPLATIN [Suspect]
     Indication: RECTAL CANCER
     Dosage: 664.6 mg, ONCE
     Route: 042
     Dates: start: 20110621, end: 20110621
  5. CARBOPLATIN [Suspect]
     Dates: start: 20110812
  6. KYTRIL [Suspect]
     Indication: PREMEDICATION
     Dosage: 3 mg, ONCE
     Route: 042
     Dates: start: 20110621, end: 20110621
  7. METOCLOPRAMIDE [Suspect]
     Indication: PREMEDICATION
     Dosage: 20 mg, ONCE
     Route: 042
     Dates: start: 20110621, end: 20110621
  8. METHYLPREDNISOLONE [Suspect]
     Indication: PREMEDICATION
     Dosage: 60 mg, ONCE
     Route: 042
     Dates: start: 20110621, end: 20110621
  9. AZANTAC [Suspect]
     Indication: PREMEDICATION
     Dosage: 50 mg, ONCE
     Route: 042
     Dates: start: 20110621, end: 20110621

REACTIONS (6)
  - Hypotension [Recovered/Resolved]
  - Abdominal pain [Recovered/Resolved]
  - Nausea [Recovered/Resolved]
  - Vomiting [Recovered/Resolved]
  - Hyperhidrosis [Recovered/Resolved]
  - Off label use [Unknown]
